FAERS Safety Report 21822657 (Version 2)
Quarter: 2023Q1

REPORT INFORMATION
  Report Type: Spontaneous
  Country: US (occurrence: US)
  Receive Date: 20230105
  Receipt Date: 20230323
  Transmission Date: 20230418
  Serious: Yes (Hospitalization, Other)
  Sender: FDA-Public Use
  Company Number: US-LUPIN PHARMACEUTICALS INC.-2022-14989

PATIENT
  Age: 6 Decade
  Sex: Female

DRUGS (5)
  1. LEVOFLOXACIN [Suspect]
     Active Substance: LEVOFLOXACIN
     Indication: Pyelonephritis chronic
     Dosage: 500 MILLIGRAM, QD INGESTED 14 TABLETS
     Route: 048
  2. VITAMINS [Concomitant]
     Active Substance: VITAMINS
     Indication: Product used for unknown indication
     Dosage: PILL
     Route: 065
  3. VITAMIN C [Concomitant]
     Active Substance: ASCORBIC ACID
     Indication: Product used for unknown indication
     Dosage: PILL
     Route: 065
  4. VITAMIN D [Concomitant]
     Active Substance: VITAMIN D NOS
     Indication: Product used for unknown indication
     Dosage: PILL
     Route: 065
  5. CALCIUM [Concomitant]
     Active Substance: CALCIUM
     Indication: Product used for unknown indication
     Dosage: PILL
     Route: 065

REACTIONS (15)
  - Lacunar stroke [Recovering/Resolving]
  - Sensorimotor disorder [Recovering/Resolving]
  - Nausea [Unknown]
  - Anxiety [Unknown]
  - Flushing [Unknown]
  - Dizziness [Unknown]
  - Accidental overdose [Unknown]
  - Palpitations [Unknown]
  - Muscle tightness [Unknown]
  - Myalgia [Unknown]
  - Tremor [Unknown]
  - Musculoskeletal stiffness [Unknown]
  - Tendon disorder [Unknown]
  - Off label use [Unknown]
  - Muscle spasms [Unknown]
